FAERS Safety Report 6725733-3 (Version None)
Quarter: 2010Q2

REPORT INFORMATION
  Report Type: 
  Country: None (occurrence: None)
  Receive Date: 20100514
  Receipt Date: 20100507
  Transmission Date: 20101027
  Serious: Yes (Other)
  Sender: FDA-Public Use
  Company Number: US-PFIZER INC-2010058038

PATIENT
  Sex: Female
  Weight: 48.98 kg

DRUGS (4)
  1. CHANTIX [Suspect]
     Indication: SMOKING CESSATION THERAPY
     Dosage: UNK
     Route: 048
     Dates: start: 20100201
  2. VICODIN [Concomitant]
     Indication: BACK DISORDER
     Dosage: UNK
  3. PROPOXYPHENE [Concomitant]
     Indication: PAIN
     Dosage: UNK
  4. VITAMIN B-12 [Concomitant]
     Indication: PERNICIOUS ANAEMIA
     Dosage: UNK

REACTIONS (5)
  - ASTHENIA [None]
  - BALANCE DISORDER [None]
  - BLOOD PRESSURE INCREASED [None]
  - DIZZINESS [None]
  - VERTIGO [None]
